FAERS Safety Report 6671550-2 (Version None)
Quarter: 2010Q2

REPORT INFORMATION
  Report Type: 
  Country: None (occurrence: None)
  Receive Date: 20100407
  Receipt Date: 20100402
  Transmission Date: 20101027
  Serious: Yes (Other)
  Sender: FDA-Public Use
  Company Number: US-GENENTECH-292141

PATIENT
  Sex: Female
  Weight: 89.796 kg

DRUGS (7)
  1. XOLAIR [Suspect]
     Indication: ASTHMA
     Dosage: 150 MG, 1/MONTH
     Route: 058
     Dates: start: 20080616
  2. IMMUNOTHERAPY (ALLERGEN UNKNOWN) [Suspect]
     Indication: HYPERSENSITIVITY
  3. ZYRTEC [Concomitant]
     Indication: RHINITIS SEASONAL
     Dosage: UNK
     Route: 048
  4. PATANASE [Concomitant]
     Indication: RHINITIS SEASONAL
     Dosage: UNK
     Route: 045
  5. ALLEGRA [Concomitant]
     Indication: RHINITIS SEASONAL
     Dosage: UNK
     Route: 048
  6. FLONASE [Concomitant]
     Indication: RHINITIS SEASONAL
     Dosage: UNK
     Route: 045
  7. ADVAIR DISKUS 100/50 [Concomitant]
     Indication: ASTHMA
     Dosage: UNK
     Route: 048

REACTIONS (1)
  - ANAPHYLACTIC REACTION [None]
